FAERS Safety Report 9555623 (Version 1)
Quarter: 2013Q3

REPORT INFORMATION
  Report Type: Spontaneous
  Country: US (occurrence: None)
  Receive Date: 20130726
  Receipt Date: 20130726
  Transmission Date: 20140515
  Serious: No
  Sender: FDA-Public Use
  Company Number: UTC-021425

PATIENT
  Age: 60 Year
  Sex: Female
  Weight: 65.9 kg

DRUGS (1)
  1. REMODULIN [Suspect]
     Indication: COR PULMONALE CHRONIC
     Dosage: 53.28 UG / KG, 1 IN 1 MIN), INTRAVENOUS DRIP
     Route: 041
     Dates: start: 20100903

REACTIONS (2)
  - Diarrhoea [None]
  - Functional gastrointestinal disorder [None]
